FAERS Safety Report 21299291 (Version 6)
Quarter: 2023Q1

REPORT INFORMATION
  Report Type: Report from Study
  Country: AU (occurrence: None)
  Receive Date: 20220906
  Receipt Date: 20230320
  Transmission Date: 20230418
  Serious: Yes (Other)
  Sender: FDA-Public Use
  Company Number: AU-ROCHE-3101473

PATIENT
  Age: 64 Year
  Sex: Female
  Weight: 70.5 kg

DRUGS (36)
  1. FARICIMAB [Suspect]
     Active Substance: FARICIMAB
     Indication: Macular oedema
     Route: 050
     Dates: start: 20211222
  2. FARICIMAB [Suspect]
     Active Substance: FARICIMAB
     Indication: Retinal vein occlusion
  3. FARICIMAB [Suspect]
     Active Substance: FARICIMAB
     Indication: Macular oedema
     Dosage: START DATE OF MOST RECENT DOSE OF STUDY DRUG PRIOR TO AE 16-FEB-2022 12:49 PM
     Route: 050
     Dates: start: 20211222
  4. FARICIMAB [Suspect]
     Active Substance: FARICIMAB
     Indication: Retinal vein occlusion
  5. PRISTIQ EXTENDED-RELEASE [Concomitant]
     Active Substance: DESVENLAFAXINE SUCCINATE
     Indication: Depression
     Route: 048
     Dates: start: 2015
  6. SIMBRINZA [Concomitant]
     Active Substance: BRIMONIDINE TARTRATE\BRINZOLAMIDE
     Indication: Uveitis
     Route: 047
     Dates: start: 20220316, end: 20220516
  7. SIMBRINZA [Concomitant]
     Active Substance: BRIMONIDINE TARTRATE\BRINZOLAMIDE
     Indication: Intraocular pressure increased
     Route: 047
     Dates: start: 20220601, end: 20220625
  8. SIMBRINZA [Concomitant]
     Active Substance: BRIMONIDINE TARTRATE\BRINZOLAMIDE
     Route: 047
     Dates: start: 20220706, end: 20220812
  9. SIMBRINZA [Concomitant]
     Active Substance: BRIMONIDINE TARTRATE\BRINZOLAMIDE
     Route: 047
     Dates: start: 20221221
  10. PREDNISOLONE [Concomitant]
     Active Substance: PREDNISOLONE
     Indication: Uveitis
     Route: 048
     Dates: start: 20220413, end: 20220513
  11. NEXIUM [Concomitant]
     Active Substance: ESOMEPRAZOLE MAGNESIUM
     Indication: Uveitis
     Route: 048
     Dates: start: 20220413
  12. LATANOPROST\TIMOLOL MALEATE [Concomitant]
     Active Substance: LATANOPROST\TIMOLOL MALEATE
     Indication: Intraocular pressure increased
     Route: 047
     Dates: start: 20220317, end: 20220517
  13. PHENYLEPHRINE HYDROCHLORIDE\PREDNISOLONE ACETATE [Concomitant]
     Active Substance: PHENYLEPHRINE HYDROCHLORIDE\PREDNISOLONE ACETATE
     Indication: Uveitis
     Route: 047
     Dates: start: 20220601, end: 20220629
  14. PHENYLEPHRINE HYDROCHLORIDE\PREDNISOLONE ACETATE [Concomitant]
     Active Substance: PHENYLEPHRINE HYDROCHLORIDE\PREDNISOLONE ACETATE
     Route: 047
     Dates: start: 20220719
  15. PANADOL [Concomitant]
     Active Substance: ACETAMINOPHEN
     Indication: Vertigo
     Route: 048
     Dates: start: 20220506
  16. DEXAMETHASONE [Concomitant]
     Active Substance: DEXAMETHASONE
     Indication: Macular oedema
     Route: 050
     Dates: start: 20220608, end: 20220608
  17. TIMOLOL [Concomitant]
     Active Substance: TIMOLOL
     Indication: Uveitis
     Route: 047
     Dates: start: 20220315, end: 20220317
  18. DEXAMETHASONE [Concomitant]
     Active Substance: DEXAMETHASONE
     Indication: Uveitis
     Dosage: EYE DROPS
     Route: 047
     Dates: start: 20220315, end: 20220323
  19. CHLORAMPHENICOL [Concomitant]
     Active Substance: CHLORAMPHENICOL
     Indication: Uveitis
     Route: 047
     Dates: start: 20220316, end: 20220408
  20. VANCOMYCIN [Concomitant]
     Active Substance: VANCOMYCIN
     Indication: Uveitis
     Route: 050
     Dates: start: 20220406, end: 20220406
  21. VANCOMYCIN [Concomitant]
     Active Substance: VANCOMYCIN
     Indication: Prophylaxis
     Route: 050
     Dates: start: 20220409, end: 20220409
  22. VALACYCLOVIR HYDROCHLORIDE [Concomitant]
     Active Substance: VALACYCLOVIR HYDROCHLORIDE
     Indication: Uveitis
     Route: 048
     Dates: start: 20220316, end: 20220323
  23. CEFTAZIDIME [Concomitant]
     Active Substance: CEFTAZIDIME
     Indication: Uveitis
     Route: 050
     Dates: start: 20220406, end: 20220406
  24. CEFTAZIDIME [Concomitant]
     Active Substance: CEFTAZIDIME
     Route: 050
     Dates: start: 20220409, end: 20220409
  25. ACETAMINOPHEN [Concomitant]
     Active Substance: ACETAMINOPHEN
     Indication: Pneumonia viral
     Route: 048
     Dates: start: 20220908, end: 20220909
  26. AMOXICILLIN\CLAVULANATE POTASSIUM [Concomitant]
     Active Substance: AMOXICILLIN\CLAVULANATE POTASSIUM
     Indication: Pneumonia viral
     Route: 048
     Dates: start: 20220908, end: 20220913
  27. OZURDEX [Concomitant]
     Active Substance: DEXAMETHASONE
     Indication: Macular oedema
     Route: 050
     Dates: start: 20230118, end: 20230118
  28. OZURDEX [Concomitant]
     Active Substance: DEXAMETHASONE
     Indication: Retinal vein occlusion
  29. RANIBIZUMAB [Concomitant]
     Active Substance: RANIBIZUMAB
     Indication: Macular oedema
     Route: 050
     Dates: start: 20220420, end: 20220420
  30. ATORVASTATIN [Concomitant]
     Active Substance: ATORVASTATIN
     Route: 048
     Dates: start: 20230206
  31. TELMISARTAN [Concomitant]
     Active Substance: TELMISARTAN
     Route: 048
     Dates: start: 20230206
  32. XALATAN [Concomitant]
     Active Substance: LATANOPROST
     Indication: Intraocular pressure increased
     Route: 047
     Dates: start: 20230215
  33. PERINDOPRIL ARGININE [Concomitant]
     Active Substance: PERINDOPRIL ARGININE
     Indication: Stress cardiomyopathy
     Route: 048
     Dates: start: 20230306
  34. ASPIRIN [Concomitant]
     Active Substance: ASPIRIN
     Indication: Stress cardiomyopathy
     Route: 048
     Dates: start: 20230306
  35. BISOPROLOL FUMARATE [Concomitant]
     Active Substance: BISOPROLOL FUMARATE
     Indication: Stress cardiomyopathy
     Route: 048
     Dates: start: 20230306
  36. MELATONIN [Concomitant]
     Active Substance: MELATONIN
     Indication: Sleep apnoea syndrome
     Route: 048
     Dates: start: 20230306

REACTIONS (1)
  - Cystoid macular oedema [Recovering/Resolving]

NARRATIVE: CASE EVENT DATE: 20220406
